FAERS Safety Report 24655203 (Version 1)
Quarter: 2024Q4

REPORT INFORMATION
  Report Type: Report from Study
  Country: IT (occurrence: IT)
  Receive Date: 20241123
  Receipt Date: 20241123
  Transmission Date: 20250114
  Serious: Yes (Other)
  Sender: AUROBINDO
  Company Number: IT-SANDOZ-SDZ2024IT057015

PATIENT
  Age: 46 Year
  Sex: Female

DRUGS (9)
  1. MYCOPHENOLIC ACID [Suspect]
     Active Substance: MYCOPHENOLIC ACID
     Indication: Immunosuppressant drug therapy
     Dosage: 2 GRAM, ONCE A DAY (2 G, QD, TAPERED TO 1 AT THE END OF THE FRST YEAR)
     Route: 042
  2. BASILIXIMAB [Suspect]
     Active Substance: BASILIXIMAB
     Indication: Immunosuppressant drug therapy
     Dosage: 20 MILLIGRAM (20 MG, DAY 0-4)
     Route: 042
  3. TACROLIMUS [Suspect]
     Active Substance: TACROLIMUS
     Indication: Immunosuppressant drug therapy
     Dosage: 0.2 MG/KG, ONCE A DAY (0.1 MG/KG, BID)
     Route: 042
  4. CYCLOPHOSPHAMIDE [Suspect]
     Active Substance: CYCLOPHOSPHAMIDE
     Indication: Granulomatosis with polyangiitis
     Dosage: 15 MG/KG, EVERY 2-3 WEEKS FOR 3-6 MONTHS
     Route: 042
  5. CYCLOPHOSPHAMIDE [Suspect]
     Active Substance: CYCLOPHOSPHAMIDE
     Dosage: 2 MG/KG, QD
     Route: 048
  6. PREDNISONE [Suspect]
     Active Substance: PREDNISONE
     Indication: Immunosuppressant drug therapy
     Dosage: 1 MG/KG TAPERED TO 5-10 MG/DAY
     Route: 042
  7. PREDNISONE [Suspect]
     Active Substance: PREDNISONE
     Dosage: 20 MG PER DAY TAPERED TO 5 MG PER DAY AT DAY 60
     Route: 042
  8. METHYLPREDNISOLONE [Suspect]
     Active Substance: METHYLPREDNISOLONE
     Indication: Immunosuppressant drug therapy
     Dosage: 500-1000 MG DAILY FOR 3 DAYS
     Route: 042
  9. METHYLPREDNISOLONE [Suspect]
     Active Substance: METHYLPREDNISOLONE
     Dosage: 125 MG, DAY 1500 MG ON DAY 0, 125 MG DAY 1-2
     Route: 042

REACTIONS (1)
  - Renal cell carcinoma [Unknown]
